FAERS Safety Report 13011117 (Version 1)
Quarter: 2016Q4

REPORT INFORMATION
  Report Type: Spontaneous
  Country: US (occurrence: US)
  Receive Date: 20161208
  Receipt Date: 20161208
  Transmission Date: 20170207
  Serious: Yes (Other)
  Sender: FDA-Public Use
  Company Number: US-AMGEN-USASP2016172396

PATIENT
  Age: 9 Year
  Sex: Male
  Weight: 28.57 kg

DRUGS (1)
  1. ENBREL [Suspect]
     Active Substance: ETANERCEPT
     Indication: PSORIASIS
     Dosage: 25 MG, QWK
     Route: 058
     Dates: start: 201509, end: 201611

REACTIONS (2)
  - Drug ineffective [Unknown]
  - Uveitis [Unknown]

NARRATIVE: CASE EVENT DATE: 201611
